FAERS Safety Report 5502049-4 (Version None)
Quarter: 2007Q4

REPORT INFORMATION
  Report Type: 
  Country: None (occurrence: None)
  Receive Date: 20071030
  Receipt Date: 20070420
  Transmission Date: 20080405
  Serious: No
  Sender: FDA-Public Use
  Company Number: A0648157A

PATIENT
  Age: 51 Year

DRUGS (3)
  1. IMITREX [Suspect]
     Indication: MIGRAINE
     Dosage: 20MG AS REQUIRED
     Route: 045
     Dates: start: 20070416, end: 20070416
  2. IMITREX [Concomitant]
  3. ESTROGEN [Concomitant]

REACTIONS (1)
  - DRUG INEFFECTIVE [None]
